FAERS Safety Report 9514093 (Version 2)
Quarter: 2013Q4

REPORT INFORMATION
  Report Type: Spontaneous
  Country: CN (occurrence: CN)
  Receive Date: 20130910
  Receipt Date: 20131029
  Transmission Date: 20140711
  Serious: Yes (Hospitalization, Other)
  Sender: FDA-Public Use
  Company Number: CN-ROCHE-1271989

PATIENT
  Age: 23 Year
  Sex: Male

DRUGS (3)
  1. PEGASYS [Suspect]
     Indication: CHRONIC HEPATITIS B
     Route: 065
     Dates: start: 200801, end: 200811
  2. SEBIVO [Suspect]
     Indication: CHRONIC HEPATITIS B
     Route: 065
     Dates: start: 200801, end: 20090101
  3. BARACLUDE [Concomitant]
     Route: 065

REACTIONS (2)
  - Rhabdomyolysis [Recovering/Resolving]
  - Lactic acidosis [Recovering/Resolving]
